FAERS Safety Report 14171890 (Version 1)
Quarter: 2017Q4

REPORT INFORMATION
  Report Type: Spontaneous
  Country: US (occurrence: US)
  Receive Date: 20171108
  Receipt Date: 20171108
  Transmission Date: 20180321
  Serious: No
  Sender: FDA-Public Use
  Company Number: US-009507513-1710USA010478

PATIENT
  Age: 63 Year
  Sex: Male

DRUGS (4)
  1. PRINIVIL [Concomitant]
     Active Substance: LISINOPRIL
  2. ZEPATIER [Suspect]
     Active Substance: ELBASVIR\GRAZOPREVIR
     Indication: HEPATITIS C
     Dosage: 100/50 MG, UNK
     Route: 048
     Dates: start: 20171005
  3. OXYCODONE [Concomitant]
     Active Substance: OXYCODONE
  4. XANAX [Concomitant]
     Active Substance: ALPRAZOLAM

REACTIONS (2)
  - Insomnia [Unknown]
  - Diplopia [Unknown]

NARRATIVE: CASE EVENT DATE: 201710
